FAERS Safety Report 4807934-4 (Version None)
Quarter: 2005Q4

REPORT INFORMATION
  Report Type: 
  Country: None (occurrence: None)
  Receive Date: 20051024
  Receipt Date: 20051006
  Transmission Date: 20060501
  Serious: Yes (Hospitalization)
  Sender: FDA-Public Use
  Company Number: JP-MERCK-0510USA06782

PATIENT
  Age: 59 Year
  Sex: Female

DRUGS (3)
  1. PEPCID [Suspect]
     Route: 048
     Dates: start: 20050909, end: 20050922
  2. ZANTAC [Suspect]
     Route: 048
     Dates: start: 20050923, end: 20051004
  3. PEPCID [Suspect]
     Indication: STOMACH DISCOMFORT
     Route: 048
     Dates: start: 20050901, end: 20050908

REACTIONS (2)
  - ATRIOVENTRICULAR BLOCK COMPLETE [None]
  - DRUG INEFFECTIVE [None]
